FAERS Safety Report 25317291 (Version 1)
Quarter: 2025Q2

REPORT INFORMATION
  Report Type: Spontaneous
  Country: US (occurrence: US)
  Receive Date: 20250515
  Receipt Date: 20250515
  Transmission Date: 20250717
  Serious: Yes (Death, Hospitalization, Other)
  Sender: SANOFI AVENTIS
  Company Number: US-SA-2025SA116725

PATIENT
  Age: 89 Year
  Sex: Female

DRUGS (13)
  1. DUPIXENT [Suspect]
     Active Substance: DUPILUMAB
     Indication: Asthma
     Route: 058
     Dates: start: 202409, end: 202409
  2. DUPIXENT [Suspect]
     Active Substance: DUPILUMAB
     Dosage: 300 MG, QOW
     Route: 058
     Dates: start: 2024, end: 202503
  3. SODIUM CHLORIDE [Concomitant]
     Active Substance: SODIUM CHLORIDE
  4. MEGESTROL [Concomitant]
     Active Substance: MEGESTROL
  5. LEVOTHYROXINE SODIUM [Concomitant]
     Active Substance: LEVOTHYROXINE SODIUM
  6. SINGULAIR [Concomitant]
     Active Substance: MONTELUKAST SODIUM
  7. PANTOPRAZOLE [Concomitant]
     Active Substance: PANTOPRAZOLE
  8. MIRALAX [Concomitant]
     Active Substance: POLYETHYLENE GLYCOL 3350
  9. METOPROLOL [Concomitant]
     Active Substance: METOPROLOL
  10. ATORVASTATIN [Concomitant]
     Active Substance: ATORVASTATIN
  11. APIXABAN [Concomitant]
     Active Substance: APIXABAN
  12. CLOPIDOGREL [Concomitant]
     Active Substance: CLOPIDOGREL BISULFATE
  13. FAMOTIDINE [Concomitant]
     Active Substance: FAMOTIDINE

REACTIONS (9)
  - Death [Fatal]
  - Hospitalisation [Unknown]
  - Illness [Unknown]
  - Cough [Recovering/Resolving]
  - Blood bilirubin abnormal [Unknown]
  - Protein urine present [Unknown]
  - Urinary nitrogen increased [Unknown]
  - Protein total increased [Unknown]
  - Blood albumin increased [Unknown]

NARRATIVE: CASE EVENT DATE: 20241201
